FAERS Safety Report 7666133-1 (Version None)
Quarter: 2011Q3

REPORT INFORMATION
  Report Type: 
  Country: None (occurrence: None)
  Receive Date: 20110806
  Receipt Date: 20110622
  Transmission Date: 20111222
  Serious: No
  Sender: FDA-Public Use
  Company Number: US-ABBOTT-11P-163-0834335-00

PATIENT
  Sex: Female
  Weight: 67.192 kg

DRUGS (2)
  1. ASPIRIN [Concomitant]
     Indication: DRUG THERAPY
     Dates: start: 20110524
  2. NIASPAN [Suspect]
     Indication: BLOOD CHOLESTEROL INCREASED
     Dates: start: 20110524

REACTIONS (4)
  - DIZZINESS [None]
  - VISION BLURRED [None]
  - GINGIVAL PAIN [None]
  - SENSITIVITY OF TEETH [None]
